FAERS Safety Report 20163778 (Version 1)
Quarter: 2021Q4

REPORT INFORMATION
  Report Type: Spontaneous
  Country: US (occurrence: US)
  Receive Date: 20211209
  Receipt Date: 20211209
  Transmission Date: 20220303
  Serious: No
  Sender: FDA-Public Use
  Company Number: US-ELI_LILLY_AND_COMPANY-US202112003489

PATIENT
  Sex: Female

DRUGS (1)
  1. INSULIN LISPRO JUNIOR KWIKPEN [Suspect]
     Active Substance: INSULIN LISPRO
     Indication: Type 1 diabetes mellitus
     Dosage: 4.5-5 U, UNKNOWN
     Route: 058
     Dates: start: 202012

REACTIONS (2)
  - Choking [Recovered/Resolved]
  - Nausea [Recovered/Resolved]
